FAERS Safety Report 17691768 (Version 4)
Quarter: 2021Q1

REPORT INFORMATION
  Report Type: Spontaneous
  Country: NZ (occurrence: NZ)
  Receive Date: 20200422
  Receipt Date: 20210303
  Transmission Date: 20210419
  Serious: Yes (Other)
  Sender: FDA-Public Use
  Company Number: NZ-ABBVIE-20K-118-3365480-00

PATIENT
  Age: 45 Year
  Sex: Male
  Weight: 81 kg

DRUGS (6)
  1. HUMIRA [Suspect]
     Active Substance: ADALIMUMAB
     Route: 058
  2. PEMBROLIZUMAB. [Concomitant]
     Active Substance: PEMBROLIZUMAB
     Indication: PRODUCT USED FOR UNKNOWN INDICATION
     Dates: start: 202003
  3. HUMIRA [Suspect]
     Active Substance: ADALIMUMAB
     Indication: PSORIASIS
     Route: 058
     Dates: start: 20120201, end: 20200131
  4. CYCLOSPORINE. [Suspect]
     Active Substance: CYCLOSPORINE
     Indication: PRODUCT USED FOR UNKNOWN INDICATION
     Route: 065
     Dates: start: 201011, end: 201112
  5. HUMIRA [Suspect]
     Active Substance: ADALIMUMAB
     Route: 058
  6. HUMIRA [Suspect]
     Active Substance: ADALIMUMAB
     Route: 058

REACTIONS (17)
  - Lung neoplasm [Unknown]
  - Cerebral haemorrhage [Unknown]
  - Central nervous system lesion [Unknown]
  - Skin disorder [Recovered/Resolved]
  - Oropharyngeal pain [Unknown]
  - Nasopharyngitis [Recovering/Resolving]
  - Haemoptysis [Unknown]
  - Heart rate irregular [Recovered/Resolved]
  - Pharyngitis [Not Recovered/Not Resolved]
  - Pulmonary mass [Unknown]
  - Pulmonary congestion [Unknown]
  - Psoriasis [Unknown]
  - Metastatic malignant melanoma [Unknown]
  - Brain oedema [Unknown]
  - Metastatic malignant melanoma [Recovered/Resolved]
  - Cardiac disorder [Recovering/Resolving]
  - Pulmonary hilum mass [Unknown]

NARRATIVE: CASE EVENT DATE: 20140508
